FAERS Safety Report 14557586 (Version 2)
Quarter: 2018Q1

REPORT INFORMATION
  Report Type: Spontaneous
  Country: IL (occurrence: IL)
  Receive Date: 20180221
  Receipt Date: 20180306
  Transmission Date: 20180509
  Serious: Yes (Other)
  Sender: FDA-Public Use
  Company Number: IL-JNJFOC-20180215168

PATIENT
  Age: 20 Year
  Sex: Male

DRUGS (1)
  1. DARZALEX [Suspect]
     Active Substance: DARATUMUMAB
     Indication: B-CELL TYPE ACUTE LEUKAEMIA

REACTIONS (2)
  - Off label use [Unknown]
  - Acute lymphocytic leukaemia recurrent [Unknown]
